FAERS Safety Report 8781464 (Version 2)
Quarter: 2012Q4

REPORT INFORMATION
  Report Type: 
  Country: US (occurrence: US)
  Receive Date: 20120913
  Receipt Date: 20121022
  Transmission Date: 20130627
  Serious: Yes (Other)
  Sender: FDA-Public Use
  Company Number: US-BAYER-2012-093304

PATIENT
  Age: 28 Year
  Sex: Female
  Weight: 53.06 kg

DRUGS (4)
  1. MIRENA [Suspect]
     Indication: CONTRACEPTION
     Dosage: 20 ?g, UNK
     Route: 015
     Dates: start: 20120807, end: 20120821
  2. MIRENA [Suspect]
     Indication: CONTRACEPTION
     Dosage: 20 ?g, CONT
     Route: 015
     Dates: start: 20120821, end: 20120912
  3. PRENATAL VITAMINS [Concomitant]
     Indication: PREGNANCY
     Dosage: UNK
     Dates: start: 201108
  4. PRENATAL VITAMINS [Concomitant]
     Indication: BREAST FEEDING

REACTIONS (6)
  - Vaginal haemorrhage [Recovering/Resolving]
  - Abdominal pain lower [Recovering/Resolving]
  - Pain [Recovering/Resolving]
  - Device expulsion [Recovered/Resolved]
  - Dyspareunia [Recovered/Resolved]
  - Medical device discomfort [Recovering/Resolving]
